FAERS Safety Report 5482381-3 (Version None)
Quarter: 2007Q4

REPORT INFORMATION
  Report Type: 
  Country: None (occurrence: None)
  Receive Date: 20071011
  Receipt Date: 20071001
  Transmission Date: 20080405
  Serious: Yes (Hospitalization)
  Sender: FDA-Public Use
  Company Number: B0213110A

PATIENT
  Age: 83 Year
  Sex: Female

DRUGS (6)
  1. AUGMENTIN '125' [Suspect]
     Route: 048
     Dates: start: 19950608, end: 19950615
  2. LASIX [Concomitant]
  3. LOPRESSOR [Concomitant]
  4. CALCIPARINE [Concomitant]
  5. ADANCOR [Concomitant]
  6. PRAVASTATIN [Concomitant]
     Route: 048

REACTIONS (2)
  - AGRANULOCYTOSIS [None]
  - PYREXIA [None]
